FAERS Safety Report 5518891-X (Version None)
Quarter: 2007Q4

REPORT INFORMATION
  Report Type: 
  Country: None (occurrence: None)
  Receive Date: 20071114
  Receipt Date: 20071106
  Transmission Date: 20080405
  Serious: Yes (Hospitalization)
  Sender: FDA-Public Use
  Company Number: 163-21880-07100868

PATIENT
  Age: 64 Year
  Sex: Female

DRUGS (7)
  1. REVLIMID [Suspect]
     Indication: MULTIPLE MYELOMA
     Dosage: 25 MG, 1 IN 1 D, ORAL
     Route: 048
     Dates: start: 20070915, end: 20071011
  2. DECADRON [Concomitant]
  3. ZOCOR [Concomitant]
  4. PROLOSEC        (OMEPRAZOLE) [Concomitant]
  5. LEXAPRO            (ESCITATIOPRAM OXALATE) [Concomitant]
  6. ELAVIL [Concomitant]
  7. ASPIRIN [Concomitant]

REACTIONS (6)
  - BACK PAIN [None]
  - MUSCULOSKELETAL CHEST PAIN [None]
  - PYREXIA [None]
  - RASH MACULAR [None]
  - RASH PAPULAR [None]
  - RASH VESICULAR [None]
